FAERS Safety Report 7638228-X (Version None)
Quarter: 2011Q3

REPORT INFORMATION
  Report Type: 
  Country: None (occurrence: None)
  Receive Date: 20110720
  Receipt Date: 20110525
  Transmission Date: 20111222
  Serious: Yes (Death)
  Sender: FDA-Public Use
  Company Number: USA/USA/11/0019031

PATIENT
  Age: 19 Year
  Sex: Male

DRUGS (2)
  1. AMLODIPINE BESYLATE [Suspect]
     Indication: PRODUCT USED FOR UNKNOWN INDICATION
     Dosage: 70 DOSAGE FORMS, TATAL, UNKNOWN
  2. LISINOPRIL [Suspect]
     Indication: PRODUCT USED FOR UNKNOWN INDICATION
     Dosage: 30 DOSAGE FORMS, TOTAL, UNKNOWN

REACTIONS (4)
  - HAEMODYNAMIC INSTABILITY [None]
  - PULSE ABSENT [None]
  - COMPLETED SUICIDE [None]
  - HYPOTENSION [None]
